FAERS Safety Report 7072853-2 (Version None)
Quarter: 2010Q4

REPORT INFORMATION
  Report Type: 
  Country: None (occurrence: None)
  Receive Date: 20101029
  Receipt Date: 20100322
  Transmission Date: 20110411
  Serious: No
  Sender: FDA-Public Use
  Company Number: A0851378A

PATIENT
  Age: 73 Year
  Sex: Male

DRUGS (7)
  1. ADVAIR DISKUS 100/50 [Suspect]
     Indication: CHRONIC OBSTRUCTIVE PULMONARY DISEASE
     Dosage: 1PUFF TWICE PER DAY
     Route: 055
     Dates: start: 20100220
  2. VENTOLIN [Concomitant]
  3. DIGOXIN [Concomitant]
  4. COREG [Concomitant]
  5. FOSINOPRIL SODIUM [Concomitant]
  6. LIPITOR [Concomitant]
  7. ASPIRIN [Concomitant]

REACTIONS (3)
  - COUGH [None]
  - DYSPHONIA [None]
  - ILL-DEFINED DISORDER [None]
